FAERS Safety Report 4814618-5 (Version None)
Quarter: 2005Q4

REPORT INFORMATION
  Report Type: 
  Country: None (occurrence: None)
  Receive Date: 20051028
  Receipt Date: 20050324
  Transmission Date: 20060501
  Serious: Yes (Other)
  Sender: FDA-Public Use
  Company Number: SER/8/3909

PATIENT
  Sex: Female

DRUGS (1)
  1. PAROXETINE HCL [Suspect]
     Indication: DEPRESSION
     Route: 065

REACTIONS (4)
  - ACCIDENT [None]
  - AGGRESSION [None]
  - COMPLETED SUICIDE [None]
  - FALL [None]
